FAERS Safety Report 5033463-1 (Version None)
Quarter: 2006Q2

REPORT INFORMATION
  Report Type: 
  Country: None (occurrence: None)
  Receive Date: 20060623
  Receipt Date: 20060616
  Transmission Date: 20061013
  Serious: Yes (Hospitalization)
  Sender: FDA-Public Use
  Company Number: FR-AVENTIS-200613362EU

PATIENT
  Age: 80 Year
  Sex: Female

DRUGS (7)
  1. FLUDEX [Suspect]
     Indication: HYPERTENSION
     Route: 048
     Dates: start: 20050101, end: 20060329
  2. TEGRETOL [Suspect]
     Route: 048
     Dates: start: 20050101, end: 20060329
  3. TRIATEC [Concomitant]
  4. CALCIUM WITH VITAMIN D [Concomitant]
  5. DAFLON [Concomitant]
     Route: 048
  6. EFFERALGAN [Concomitant]
  7. NORSET [Concomitant]

REACTIONS (6)
  - CHEST PAIN [None]
  - CONTUSION [None]
  - FALL [None]
  - HYPOKALAEMIA [None]
  - HYPONATRAEMIA [None]
  - MALAISE [None]
